FAERS Safety Report 6684628-4 (Version None)
Quarter: 2010Q2

REPORT INFORMATION
  Report Type: 
  Country: None (occurrence: None)
  Receive Date: 20100416
  Receipt Date: 20100407
  Transmission Date: 20101027
  Serious: Yes (Other)
  Sender: FDA-Public Use
  Company Number: US-PFIZER INC-2010044590

PATIENT
  Sex: Female

DRUGS (2)
  1. CARDURA [Suspect]
  2. NORVASC [Suspect]

REACTIONS (2)
  - HEART TRANSPLANT [None]
  - LOSS OF CONSCIOUSNESS [None]
